FAERS Safety Report 23225640 (Version 2)
Quarter: 2023Q4

REPORT INFORMATION
  Report Type: Spontaneous
  Country: US (occurrence: US)
  Receive Date: 20231124
  Receipt Date: 20231228
  Transmission Date: 20240110
  Serious: Yes (Other)
  Sender: FDA-Public Use
  Company Number: US-BAUSCHBL-2023BNL011760

PATIENT
  Age: 31 Year
  Sex: Male

DRUGS (3)
  1. TROPICAMIDE [Suspect]
     Active Substance: TROPICAMIDE
     Indication: Pupil dilation procedure
     Dosage: 1 DROP PER EYE, 1 TIME ONLY
     Route: 047
     Dates: start: 20231113, end: 20231113
  2. PROPARACAINE (PROXYMETACAINE) [Concomitant]
     Indication: Product used for unknown indication
     Dosage: 0.5 PERCENT
  3. FLUORESCEIN SODIUM [Concomitant]
     Active Substance: FLUORESCEIN SODIUM
     Indication: Product used for unknown indication
     Dosage: STRIPS

REACTIONS (3)
  - Corneal opacity [Recovered/Resolved]
  - Product closure issue [Unknown]
  - Product quality issue [Unknown]

NARRATIVE: CASE EVENT DATE: 20230101
